FAERS Safety Report 23924611 (Version 1)
Quarter: 2024Q2

REPORT INFORMATION
  Report Type: Spontaneous
  Country: US (occurrence: US)
  Receive Date: 20240531
  Receipt Date: 20240531
  Transmission Date: 20240716
  Serious: Yes (Hospitalization, Other)
  Sender: FDA-Public Use
  Company Number: US-JUBILANT PHARMA LTD-2024US000652

PATIENT
  Age: 34 Year
  Sex: Male

DRUGS (9)
  1. QUETIAPINE FUMARATE [Interacting]
     Active Substance: QUETIAPINE FUMARATE
     Indication: Bipolar disorder
     Dosage: 400 MG, 2 TIMES PER DAY
  2. QUETIAPINE FUMARATE [Interacting]
     Active Substance: QUETIAPINE FUMARATE
     Dosage: 50 MG, ONCE PER DAY
  3. CLOZAPINE [Interacting]
     Active Substance: CLOZAPINE
     Indication: Bipolar disorder
     Dosage: 100 MG, ONCE PER DAY
  4. CLOZAPINE [Interacting]
     Active Substance: CLOZAPINE
     Dosage: 450 MG, ONCE PER DAY
  5. CLOZAPINE [Interacting]
     Active Substance: CLOZAPINE
     Dosage: 50 MG, ONCE PER DAY
  6. CLOZAPINE [Interacting]
     Active Substance: CLOZAPINE
     Dosage: 50 MG, 3 TIMES PER DAY
  7. BENZTROPINE [Interacting]
     Active Substance: BENZTROPINE
     Indication: Extrapyramidal disorder
     Dosage: UNK
  8. BENZTROPINE [Interacting]
     Active Substance: BENZTROPINE
     Dosage: 1 MG, 2 TIMES PER DAY
  9. CITALOPRAM [Concomitant]
     Active Substance: CITALOPRAM\CITALOPRAM HYDROBROMIDE
     Indication: Product used for unknown indication
     Dosage: 10 MG, ONCE PER DAY

REACTIONS (10)
  - Gastrointestinal hypomotility [Recovering/Resolving]
  - Constipation [Recovering/Resolving]
  - Faecalith [Recovering/Resolving]
  - Diarrhoea [Recovering/Resolving]
  - Vomiting [Recovering/Resolving]
  - Drug interaction [Recovering/Resolving]
  - Bowel movement irregularity [Recovering/Resolving]
  - Abdominal distension [Recovering/Resolving]
  - Faecaloma [Recovering/Resolving]
  - Dehydration [Recovering/Resolving]
